FAERS Safety Report 8303491-9 (Version None)
Quarter: 2012Q2

REPORT INFORMATION
  Report Type: 
  Country: None (occurrence: None)
  Receive Date: 20120418
  Receipt Date: 20120404
  Transmission Date: 20120825
  Serious: Yes (Hospitalization, Other)
  Sender: FDA-Public Use
  Company Number: ACO_29994_2012

PATIENT
  Age: 32 Year
  Sex: Female

DRUGS (2)
  1. ZANAFLEX [Suspect]
     Indication: PRODUCT USED FOR UNKNOWN INDICATION
     Dosage: 4 MG, QD, ORAL
     Route: 048
  2. CIPROFLOXACIN [Concomitant]

REACTIONS (7)
  - SEPSIS [None]
  - DRUG INTERACTION [None]
  - HYPOXIA [None]
  - HYPOTENSION [None]
  - BACTERIAL TEST POSITIVE [None]
  - PYELONEPHRITIS [None]
  - BRADYCARDIA [None]
